FAERS Safety Report 9072325 (Version 1)
Quarter: 2013Q1

REPORT INFORMATION
  Report Type: Report from Study
  Country: US (occurrence: US)
  Receive Date: 20130129
  Receipt Date: 20130129
  Transmission Date: 20140127
  Serious: No
  Sender: FDA-Public Use
  Company Number: US-ABBOTT-12P-163-0940531-00

PATIENT
  Age: 68 Year
  Sex: Female

DRUGS (8)
  1. HUMIRA 40 MG/0.8 ML PEN [Suspect]
     Indication: CROHN^S DISEASE
     Dosage: ON 24 MAY 2012
     Dates: start: 20120511
  2. ASPIRIN [Concomitant]
     Indication: PRODUCT USED FOR UNKNOWN INDICATION
     Dosage: 81MG DAILY
  3. PENTASA [Concomitant]
     Indication: CROHN^S DISEASE
     Dosage: 2 TABS 3 TIMES A DAY
  4. TAPAZOLE [Concomitant]
     Indication: PRODUCT USED FOR UNKNOWN INDICATION
     Dosage: DAILY
  5. FOLIC ACID [Concomitant]
     Indication: PRODUCT USED FOR UNKNOWN INDICATION
     Dosage: HIGH DOSE DAILY
  6. SYNTHROID [Concomitant]
     Indication: THYROID DISORDER
     Dosage: 125MG DAILY
  7. LOVASTATIN [Concomitant]
     Indication: PRODUCT USED FOR UNKNOWN INDICATION
     Dosage: 20MG DAILY
  8. LAMOTRIGINE [Concomitant]
     Indication: CONVULSION

REACTIONS (1)
  - Injection site reaction [Not Recovered/Not Resolved]
